FAERS Safety Report 7488240-9 (Version None)
Quarter: 2011Q2

REPORT INFORMATION
  Report Type: 
  Country: None (occurrence: None)
  Receive Date: 20110518
  Receipt Date: 20110511
  Transmission Date: 20111010
  Serious: Yes (Other)
  Sender: FDA-Public Use
  Company Number: JP-ROCHE-777548

PATIENT
  Age: 75 Year
  Sex: Male

DRUGS (2)
  1. AVASTIN [Suspect]
     Dosage: DOSAGE IS UNCERATIN
     Route: 041
  2. TS-1 [Suspect]
     Dosage: DOSE FORM: PERORAL AGENT
     Route: 048

REACTIONS (1)
  - HEPATIC CIRRHOSIS [None]
